FAERS Safety Report 7651363-5 (Version None)
Quarter: 2011Q3

REPORT INFORMATION
  Report Type: 
  Country: None (occurrence: None)
  Receive Date: 20110802
  Receipt Date: 20110719
  Transmission Date: 20111222
  Serious: No
  Sender: FDA-Public Use
  Company Number: PHHY2011JP61820

PATIENT
  Age: 33 Year
  Sex: Female

DRUGS (3)
  1. METHYLPREDNISOLONE [Concomitant]
     Indication: RENAL TRANSPLANT
     Dosage: UNK UKN, UNK
  2. CYCLOSPORINE [Suspect]
     Indication: RENAL TRANSPLANT
     Dosage: UNK UKN, UNK
  3. AZATHIOPRINE [Concomitant]
     Indication: RENAL TRANSPLANT
     Dosage: UNK UKN, UNK

REACTIONS (1)
  - MATERNAL EXPOSURE DURING PREGNANCY [None]
